FAERS Safety Report 10080962 (Version 1)
Quarter: 2014Q2

REPORT INFORMATION
  Report Type: Spontaneous
  Country: US (occurrence: US)
  Receive Date: 20140416
  Receipt Date: 20140416
  Transmission Date: 20141212
  Serious: No
  Sender: FDA-Public Use
  Company Number: US-PFIZER INC-2014102421

PATIENT
  Sex: Female

DRUGS (3)
  1. LEVOXYL [Suspect]
     Dosage: 75 UG, UNK
  2. LEVOXYL [Suspect]
     Dosage: 50 UG, UNK
  3. LEVOXYL [Suspect]
     Dosage: 137 UG, UNK (SPLITTING THE TABLET IN HALF)

REACTIONS (1)
  - Agitation [Unknown]
